FAERS Safety Report 26107327 (Version 2)
Quarter: 2025Q4

REPORT INFORMATION
  Report Type: Report from Study
  Country: US (occurrence: US)
  Receive Date: 20251201
  Receipt Date: 20251210
  Transmission Date: 20260117
  Serious: No
  Sender: IDORSIA PHARMACEUTICALS
  Company Number: US-IDORSIA-012581-2025-US

PATIENT
  Sex: Male

DRUGS (3)
  1. TRYVIO [Suspect]
     Active Substance: APROCITENTAN
     Indication: Essential hypertension
     Dosage: 12.5 MG, QD
     Route: 048
     Dates: start: 20251017
  2. AMLODIPINE [Concomitant]
     Active Substance: AMLODIPINE BESYLATE
     Dosage: 5 MG
  3. CARVEDILOL [Concomitant]
     Active Substance: CARVEDILOL

REACTIONS (2)
  - Haematoma [Recovered/Resolved]
  - Anaemia [Not Recovered/Not Resolved]
